FAERS Safety Report 6686528-2 (Version None)
Quarter: 2010Q2

REPORT INFORMATION
  Report Type: 
  Country: None (occurrence: None)
  Receive Date: 20100419
  Receipt Date: 20100405
  Transmission Date: 20101027
  Serious: Yes (Hospitalization)
  Sender: FDA-Public Use
  Company Number: ES-ELI_LILLY_AND_COMPANY-ES201004001003

PATIENT
  Sex: Female

DRUGS (9)
  1. FORTEO [Suspect]
     Indication: OSTEOPOROSIS
     Dosage: 20 UG, DAILY (1/D)
     Route: 058
     Dates: start: 20090321, end: 20100331
  2. ASPIRIN [Concomitant]
     Indication: COAGULOPATHY
     Dosage: 300 MG, DAILY (1/D)
     Route: 048
     Dates: start: 20030101
  3. ZARATOR [Concomitant]
     Indication: BLOOD CHOLESTEROL
     Dosage: 40 MG, DAILY (1/D)
     Route: 048
  4. EZETROL [Concomitant]
     Indication: DEMENTIA
     Dosage: 10 MG, DAILY (1/D)
     Route: 048
  5. ATENOLOL [Concomitant]
     Indication: HYPERTENSION
     Dosage: 50 MG, DAILY (1/D)
     Route: 048
  6. OMEPRAZOLE [Concomitant]
     Dosage: 20 MG, ONE IN THE MORNING
     Route: 048
  7. TRYPTIZOL [Concomitant]
     Indication: SENILE DEMENTIA
     Dosage: UNK, DAILY (1/D)
     Route: 048
  8. XALATAN [Concomitant]
     Indication: INTRAOCULAR PRESSURE INCREASED
     Dosage: 1 DROP PER NIGHT, UNK
     Route: 047
  9. OPENVAS [Concomitant]
     Indication: HYPERTENSION
     Dosage: UNK, DAILY (1/D)
     Route: 048

REACTIONS (4)
  - CEREBROVASCULAR ACCIDENT [None]
  - DIPLOPIA [None]
  - OBSESSIVE-COMPULSIVE DISORDER [None]
  - SPEECH DISORDER [None]
